FAERS Safety Report 12848152 (Version 1)
Quarter: 2016Q4

REPORT INFORMATION
  Report Type: Spontaneous
  Country: US (occurrence: US)
  Receive Date: 20161014
  Receipt Date: 20161014
  Transmission Date: 20170207
  Serious: No
  Sender: FDA-Public Use
  Company Number: US-JNJFOC-20160714029

PATIENT
  Sex: Female

DRUGS (3)
  1. TYLENOL 8 HR [Suspect]
     Active Substance: ACETAMINOPHEN
     Route: 048
  2. MULTI VITAMIN ONE A DAY [Concomitant]
     Indication: HYPOVITAMINOSIS
     Dosage: 1/2 TABLET DAILY
     Route: 065
  3. TYLENOL 8 HR [Suspect]
     Active Substance: ACETAMINOPHEN
     Indication: ARTHRITIS
     Route: 048

REACTIONS (4)
  - Erythema [Recovered/Resolved]
  - Feeling abnormal [Recovered/Resolved]
  - Palpitations [Recovered/Resolved]
  - Incorrect dose administered [Recovered/Resolved]
